FAERS Safety Report 5983965-6 (Version None)
Quarter: 2008Q4

REPORT INFORMATION
  Report Type: 
  Country: None (occurrence: None)
  Receive Date: 20081208
  Receipt Date: 20081203
  Transmission Date: 20090506
  Serious: No
  Sender: FDA-Public Use
  Company Number: DE-ROCHE-595124

PATIENT
  Sex: Male
  Weight: 69 kg

DRUGS (1)
  1. ROFERON-A [Suspect]
     Indication: SKIN CANCER
     Route: 058
     Dates: start: 20080306, end: 20081103

REACTIONS (2)
  - ARTHRALGIA [None]
  - NIGHTMARE [None]
